FAERS Safety Report 5481562-2 (Version None)
Quarter: 2007Q4

REPORT INFORMATION
  Report Type: 
  Country: None (occurrence: None)
  Receive Date: 20071010
  Receipt Date: 20071002
  Transmission Date: 20080405
  Serious: Yes (Other)
  Sender: FDA-Public Use
  Company Number: GB-JNJFOC-20071001192

PATIENT
  Age: 13 Year

DRUGS (3)
  1. REMICADE [Suspect]
     Dosage: SECOND INFUSION SINCE INDUCTION
     Route: 042
  2. REMICADE [Suspect]
     Dosage: FIRST INFUSION SINCE INDUCTION
     Route: 042
  3. REMICADE [Suspect]
     Indication: DRUG USE FOR UNKNOWN INDICATION
     Dosage: INDUCTION AT WEEK 0, 2, AND 6
     Route: 042

REACTIONS (2)
  - ANAPHYLACTOID REACTION [None]
  - INFUSION RELATED REACTION [None]
